FAERS Safety Report 20663617 (Version 9)
Quarter: 2023Q1

REPORT INFORMATION
  Report Type: Report from Study
  Country: IT (occurrence: IT)
  Receive Date: 20220401
  Receipt Date: 20230203
  Transmission Date: 20230418
  Serious: Yes (Hospitalization)
  Sender: FDA-Public Use
  Company Number: IT-NOVARTISPH-NVSC2022IT064868

PATIENT
  Age: 36 Year
  Sex: Male
  Weight: 102 kg

DRUGS (7)
  1. ELTROMBOPAG [Suspect]
     Active Substance: ELTROMBOPAG
     Indication: Aplastic anaemia
     Dosage: 50 MG, QD
     Route: 048
     Dates: start: 202004, end: 20220318
  2. CYCLOSPORINE [Interacting]
     Active Substance: CYCLOSPORINE
     Indication: Aplastic anaemia
     Dosage: 200 MG, BID
     Route: 048
     Dates: start: 200610
  3. CYCLOSPORINE [Interacting]
     Active Substance: CYCLOSPORINE
     Dosage: 203 NG/ML
     Route: 048
     Dates: start: 20220203, end: 20220318
  4. IPTACOPAN [Interacting]
     Active Substance: IPTACOPAN
     Indication: Paroxysmal nocturnal haemoglobinuria
     Dosage: 200 MG, 2 TIMES PER DAY (BID)
     Route: 048
     Dates: start: 20220120
  5. ALLOPURINOL [Concomitant]
     Active Substance: ALLOPURINOL
     Indication: Prophylaxis
     Dosage: UNK
     Route: 065
     Dates: start: 200705
  6. ALLOPURINOL [Concomitant]
     Active Substance: ALLOPURINOL
     Dosage: UNK
     Route: 065
     Dates: start: 202004, end: 20220318
  7. DEURSIL [Concomitant]
     Active Substance: URSODIOL
     Indication: Prophylaxis
     Dosage: UNK
     Route: 065
     Dates: start: 200705

REACTIONS (1)
  - Rhabdomyolysis [Recovered/Resolved]

NARRATIVE: CASE EVENT DATE: 20220317
